FAERS Safety Report 7359001-6 (Version None)
Quarter: 2011Q1

REPORT INFORMATION
  Report Type: 
  Country: None (occurrence: None)
  Receive Date: 20110317
  Receipt Date: 20100921
  Transmission Date: 20110831
  Serious: Yes (Hospitalization)
  Sender: FDA-Public Use
  Company Number: US-BAYER-201023992NA

PATIENT
  Sex: Female
  Weight: 113.38 kg

DRUGS (12)
  1. CEFUROXIME AXETIL [Concomitant]
     Dosage: UNK
     Dates: start: 20080702, end: 20080702
  2. AMOXICILLIN [Concomitant]
  3. FLUCONAZOLE [Concomitant]
  4. AZITHROMYCIN [Concomitant]
     Indication: UPPER RESPIRATORY TRACT INFECTION
  5. PENICILLIN [Concomitant]
  6. ANUCORT-HC [Concomitant]
  7. UNCODEABLE ^UNCLASSIFIABLE^ [Concomitant]
  8. FLUTICASONE PROPIONATE [Concomitant]
  9. YAZ [Suspect]
     Indication: MENSTRUATION IRREGULAR
     Dosage: 1 DF, QD
     Route: 048
     Dates: start: 20080201, end: 20080716
  10. UNCODEABLE ^UNCLASSIFIABLE^ [Concomitant]
  11. CIPROFLOXACIN [Concomitant]
  12. ADVAIR DISKUS 100/50 [Concomitant]

REACTIONS (10)
  - DYSPNOEA [None]
  - PANIC REACTION [None]
  - HYPOAESTHESIA [None]
  - THROMBOSIS [None]
  - PULMONARY EMBOLISM [None]
  - DEEP VEIN THROMBOSIS [None]
  - COUGH [None]
  - PAIN [None]
  - OEDEMA PERIPHERAL [None]
  - PAIN IN EXTREMITY [None]
